FAERS Safety Report 10474161 (Version 1)
Quarter: 2014Q3

REPORT INFORMATION
  Report Type: Spontaneous
  Country: FR (occurrence: FR)
  Receive Date: 20140924
  Receipt Date: 20140924
  Transmission Date: 20150326
  Serious: Yes (Hospitalization)
  Sender: FDA-Public Use
  Company Number: FR-PFIZER INC-2014259139

PATIENT
  Age: 76 Year
  Sex: Female

DRUGS (10)
  1. CRESTOR [Concomitant]
     Active Substance: ROSUVASTATIN CALCIUM
  2. ALDACTONE [Suspect]
     Active Substance: SPIRONOLACTONE
     Indication: HYPERTENSION
     Dosage: 1 DF(50MG), 1X/DAY
     Route: 048
     Dates: end: 20140610
  3. LEVOTHYROX [Concomitant]
     Active Substance: LEVOTHYROXINE
  4. AMLODIPINE [Concomitant]
     Active Substance: AMLODIPINE BESYLATE
  5. OROCAL VITAMIN D [Concomitant]
     Active Substance: CALCIUM CARBONATE\VITAMIN D
  6. FLECAINE [Concomitant]
     Active Substance: FLECAINIDE
  7. XANAX [Concomitant]
     Active Substance: ALPRAZOLAM
  8. LOGIMAX [Concomitant]
     Active Substance: FELODIPINE\METOPROLOL SUCCINATE
  9. PLAVIX [Concomitant]
     Active Substance: CLOPIDOGREL BISULFATE
  10. METOPROLOL [Concomitant]
     Active Substance: METOPROLOL

REACTIONS (3)
  - Asthenia [Recovered/Resolved]
  - Hyponatraemia [Recovered/Resolved]
  - Blood hyposmosis [Recovered/Resolved]

NARRATIVE: CASE EVENT DATE: 20140610
